FAERS Safety Report 8396964-4 (Version None)
Quarter: 2012Q2

REPORT INFORMATION
  Report Type: 
  Country: None (occurrence: None)
  Receive Date: 20120530
  Receipt Date: 20120327
  Transmission Date: 20120825
  Serious: No
  Sender: FDA-Public Use
  Company Number: US-PFIZER INC-2012127993

PATIENT
  Age: 71 Year
  Sex: Male
  Weight: 81.6 kg

DRUGS (7)
  1. SIMVASTATIN [Concomitant]
     Indication: BLOOD CHOLESTEROL
     Dosage: 20 MG, 1X/DAY, OVER 4 YEARS
  2. SAW PALMETTO [Concomitant]
     Indication: PROSTATOMEGALY
     Dosage: 450 MG, 1X/DAY, SINCE 4 MONTHS
  3. MOTRIN IB [Concomitant]
     Dosage: 200 MG, 2X/DAY
     Dates: start: 20090101
  4. TYLENOL [Concomitant]
     Indication: GOUT
     Dosage: 500 MG, 3 TIMES AS NEEDED
     Dates: start: 20080101
  5. TYLENOL ARTHRITIS EXTENDED RELIEF [Concomitant]
     Indication: GOUT
     Dosage: 650 MG, UNK
     Dates: start: 20100101
  6. MOTRIN IB [Suspect]
     Indication: GOUT
     Dosage: 4-5 TIMES A DAY AS NEEDED
     Route: 048
  7. COLCHICINE [Concomitant]
     Indication: GOUT
     Dosage: 0.6 MG, 2-3 TIMES A DAY
     Dates: start: 20070101

REACTIONS (3)
  - THERAPEUTIC RESPONSE UNEXPECTED [None]
  - ANALGESIC THERAPY [None]
  - DRUG INEFFECTIVE [None]
